FAERS Safety Report 19975056 (Version 1)
Quarter: 2021Q4

REPORT INFORMATION
  Report Type: Spontaneous
  Country: US (occurrence: US)
  Receive Date: 20211020
  Receipt Date: 20211020
  Transmission Date: 20220303
  Serious: No
  Sender: FDA-Public Use
  Company Number: US-ALLERGAN-2102323US

PATIENT
  Age: 82 Year
  Sex: Female

DRUGS (3)
  1. LINZESS [Suspect]
     Active Substance: LINACLOTIDE
     Indication: Gastrointestinal disorder
     Dosage: 72 PG, QAM
     Route: 048
     Dates: start: 2020, end: 20210109
  2. LINZESS [Suspect]
     Active Substance: LINACLOTIDE
     Indication: Constipation
  3. unspecified blood pressure pill [Concomitant]
     Indication: Hypertension

REACTIONS (3)
  - Off label use [Unknown]
  - Abdominal pain upper [Not Recovered/Not Resolved]
  - Drug ineffective [Unknown]

NARRATIVE: CASE EVENT DATE: 20210101
